FAERS Safety Report 14844359 (Version 1)
Quarter: 2018Q2

REPORT INFORMATION
  Report Type: Report from Study
  Country: PL (occurrence: PL)
  Receive Date: 20180503
  Receipt Date: 20180503
  Transmission Date: 20180711
  Serious: Yes (Hospitalization, Disabling)
  Sender: FDA-Public Use
  Company Number: PL-EXELIXIS-XL18418012536

PATIENT
  Age: 64 Year
  Sex: Male
  Weight: 73 kg

DRUGS (15)
  1. ZIRID [Concomitant]
  2. KALIPOZ PROLONGATE [Concomitant]
     Active Substance: POTASSIUM CHLORIDE
  3. MATRIFEN [Concomitant]
     Active Substance: FENTANYL
  4. VIGANTOLETTEN [Concomitant]
     Active Substance: CHOLECALCIFEROL
  5. AXTIL [Concomitant]
  6. IPP [Concomitant]
     Active Substance: PANTOPRAZOLE SODIUM
  7. TRITACE [Concomitant]
     Active Substance: RAMIPRIL
  8. PROSTATIC [Concomitant]
  9. EUTHYROX [Concomitant]
     Active Substance: LEVOTHYROXINE SODIUM
  10. KREON [Concomitant]
     Active Substance: PANCRELIPASE
  11. PROURSAN [Concomitant]
     Active Substance: URSODIOL
  12. ESPIRO [Concomitant]
  13. BLINDED XL184 [Suspect]
     Active Substance: CABOZANTINIB
     Indication: MEDULLARY THYROID CANCER
     Dosage: UNK
     Dates: start: 20160906
  14. BLINDED XL184 [Suspect]
     Active Substance: CABOZANTINIB
     Indication: MEDULLARY THYROID CANCER
     Dosage: UNK
     Dates: start: 20160906
  15. AGEN [Concomitant]
     Active Substance: AMLODIPINE BESYLATE

REACTIONS (1)
  - Oesophageal candidiasis [Recovered/Resolved]

NARRATIVE: CASE EVENT DATE: 20180210
